FAERS Safety Report 7285975-8 (Version None)
Quarter: 2011Q1

REPORT INFORMATION
  Report Type: 
  Country: None (occurrence: None)
  Receive Date: 20110125
  Receipt Date: 20110110
  Transmission Date: 20110831
  Serious: Yes (Life-Threatening, Hospitalization, Disabling, Other)
  Sender: FDA-Public Use
  Company Number: ALE-00063

PATIENT
  Age: 27 Year
  Sex: Female
  Weight: 83.0083 kg

DRUGS (4)
  1. TOBACCO [Suspect]
  2. ZOLOFT [Concomitant]
  3. TRAZODONE HCL [Concomitant]
  4. ALESSE 28 TABLETS (LEVONORGESTREL AND ETHINYL ESTRADIOL TABLETS) ; AKR [Suspect]
     Indication: CONTRACEPTION
     Dates: start: 20090801

REACTIONS (4)
  - ARTHRALGIA [None]
  - BLOOD DISORDER [None]
  - PULMONARY EMBOLISM [None]
  - MYALGIA [None]
